FAERS Safety Report 4544224-1 (Version None)
Quarter: 2005Q1

REPORT INFORMATION
  Report Type: 
  Country: None (occurrence: None)
  Receive Date: 20050104
  Receipt Date: 20041223
  Transmission Date: 20050727
  Serious: Yes (Other)
  Sender: FDA-Public Use
  Company Number: US-GLAXOSMITHKLINE-A0538490A

PATIENT
  Age: 48 Year
  Sex: Female
  Weight: 90.9 kg

DRUGS (1)
  1. COMMIT [Suspect]
     Indication: SMOKING CESSATION THERAPY
     Route: 002
     Dates: start: 20041217, end: 20041223

REACTIONS (1)
  - GASTRIC ULCER [None]
